FAERS Safety Report 26186104 (Version 1)
Quarter: 2025Q4

REPORT INFORMATION
  Report Type: Spontaneous
  Country: US (occurrence: US)
  Receive Date: 20251222
  Receipt Date: 20251222
  Transmission Date: 20260118
  Serious: Yes (Other)
  Sender: ELI LILLY AND COMPANY
  Company Number: US-ELI_LILLY_AND_COMPANY-US202512022515

PATIENT
  Age: 79 Year

DRUGS (2)
  1. BASAGLAR [Suspect]
     Active Substance: INSULIN GLARGINE
     Indication: Type 2 diabetes mellitus
     Dosage: 300 U, UNKNOWN
     Route: 058
     Dates: start: 202506
  2. BASAGLAR [Suspect]
     Active Substance: INSULIN GLARGINE
     Dosage: 300 U, UNKNOWN
     Route: 058
     Dates: start: 202506

REACTIONS (1)
  - Cerebrovascular accident [Unknown]

NARRATIVE: CASE EVENT DATE: 20250701
